FAERS Safety Report 10619453 (Version 2)
Quarter: 2015Q1

REPORT INFORMATION
  Report Type: Spontaneous
  Country: CM (occurrence: None)
  Receive Date: 20141126
  Receipt Date: 20150120
  Transmission Date: 20150720
  Serious: Yes (Life-Threatening, Hospitalization, Disabling, Other)
  Sender: FDA-Public Use
  Company Number: 2014AMD00131

PATIENT
  Age: 7 Year
  Sex: Male
  Weight: 18 kg

DRUGS (5)
  1. ALBENDAZOLE [Suspect]
     Active Substance: ALBENDAZOLE
     Indication: ONCHOCERCIASIS
     Dosage: 1 TABLETS, 1X/DAY
     Dates: start: 20141007, end: 20141227
  2. MECTIZAN [Suspect]
     Active Substance: IVERMECTIN
     Indication: ONCHOCERCIASIS
     Dosage: 1 TABLET, 1X/DAY.
     Dates: start: 20141007
  3. MECTIZAN [Suspect]
     Active Substance: IVERMECTIN
     Indication: FILARIASIS LYMPHATIC
     Dosage: 1 TABLET, 1X/DAY.
     Dates: start: 20141007
  4. ASCABIOL [Concomitant]
     Active Substance: BENZYL BENZOATE
  5. ALBENDAZOLE [Suspect]
     Active Substance: ALBENDAZOLE
     Indication: FILARIASIS LYMPHATIC
     Dosage: 1 TABLETS, 1X/DAY
     Dates: start: 20141007, end: 20141227

REACTIONS (8)
  - Pyrexia [None]
  - Toxic epidermal necrolysis [None]
  - Dysphagia [None]
  - Pruritus generalised [None]
  - Wound [None]
  - Mucous membrane disorder [None]
  - Abasia [None]
  - Dermatitis bullous [None]

NARRATIVE: CASE EVENT DATE: 20141008
